FAERS Safety Report 8381890-7 (Version None)
Quarter: 2012Q2

REPORT INFORMATION
  Report Type: 
  Country: None (occurrence: None)
  Receive Date: 20120523
  Receipt Date: 20120523
  Transmission Date: 20120825
  Serious: Yes (Disabling)
  Sender: FDA-Public Use
  Company Number: None

PATIENT
  Age: 76 Year
  Sex: Female
  Weight: 95.2554 kg

DRUGS (1)
  1. HYDROXYCHLOROQUINE SULFATE [Suspect]
     Indication: POLYMYALGIA RHEUMATICA
     Dosage: 200 MG 2 X DAY
     Dates: start: 20101201, end: 20120315

REACTIONS (3)
  - SKIN DISCOLOURATION [None]
  - HAEMORRHAGE [None]
  - CONTUSION [None]
